FAERS Safety Report 21004278 (Version 1)
Quarter: 2022Q2

REPORT INFORMATION
  Report Type: Spontaneous
  Country: US (occurrence: None)
  Receive Date: 20220624
  Receipt Date: 20220624
  Transmission Date: 20220721
  Serious: Yes (Hospitalization)
  Sender: FDA-Public Use
  Company Number: None

PATIENT
  Age: 71 Year
  Sex: Male

DRUGS (1)
  1. ABIRATERONE [Suspect]
     Active Substance: ABIRATERONE
     Dosage: FREQUENCY : DAILY;?
     Route: 048
     Dates: start: 202201

REACTIONS (5)
  - Cardiac operation [None]
  - Oxygen saturation decreased [None]
  - Fatigue [None]
  - Dyspnoea [None]
  - Prostatic specific antigen increased [None]

NARRATIVE: CASE EVENT DATE: 20220624
